FAERS Safety Report 6195893-4 (Version None)
Quarter: 2009Q2

REPORT INFORMATION
  Report Type: 
  Country: None (occurrence: None)
  Receive Date: 20090520
  Receipt Date: 20090513
  Transmission Date: 20091009
  Serious: Yes (Death)
  Sender: FDA-Public Use
  Company Number: ES-ROCHE-632883

PATIENT
  Age: 78 Year
  Sex: Female

DRUGS (5)
  1. GRANISETRON HYDROCHLORIDE [Suspect]
     Indication: PROPHYLAXIS
     Dosage: FREQUENCY: CYCLIC
     Route: 065
     Dates: start: 20081201, end: 20090301
  2. BOREA [Suspect]
     Indication: ANTICACHECTIC THERAPY
     Dosage: FREQUENCY: DAILY
     Route: 048
     Dates: start: 20090311, end: 20090314
  3. FLUOROURACIL [Suspect]
     Indication: GASTRIC CANCER
     Dosage: FREQUENCY: CYCLIC (4 TIMES)
     Route: 042
     Dates: start: 20081202, end: 20090306
  4. DEXAMETHASONE 4MG TAB [Suspect]
     Indication: PROPHYLAXIS
     Dosage: FREQUENCY: CYCLIC
     Route: 065
     Dates: start: 20081201, end: 20090301
  5. CALCIUM FOLINATE [Suspect]
     Indication: PROPHYLAXIS
     Dosage: FREQUENCY: CYCLIC (4 TIMES)
     Route: 042
     Dates: start: 20081202, end: 20090306

REACTIONS (2)
  - GASTROINTESTINAL NECROSIS [None]
  - PULMONARY EMBOLISM [None]
